FAERS Safety Report 5494155-8 (Version None)
Quarter: 2007Q4

REPORT INFORMATION
  Report Type: 
  Country: None (occurrence: None)
  Receive Date: 20071024
  Receipt Date: 20071015
  Transmission Date: 20080405
  Serious: Yes (Other)
  Sender: FDA-Public Use
  Company Number: PHMT2007CA02108

PATIENT
  Sex: Male

DRUGS (1)
  1. GLEEVEC [Suspect]
     Indication: CHRONIC MYELOID LEUKAEMIA
     Dosage: UNK, UNK
     Route: 048

REACTIONS (4)
  - HYPERAESTHESIA [None]
  - SKIN ATROPHY [None]
  - SKIN FRAGILITY [None]
  - SKIN HAEMORRHAGE [None]
